FAERS Safety Report 19408485 (Version 1)
Quarter: 2021Q2

REPORT INFORMATION
  Report Type: Spontaneous
  Country: US (occurrence: US)
  Receive Date: 20210612
  Receipt Date: 20210612
  Transmission Date: 20210717
  Serious: Yes (Hospitalization)
  Sender: FDA-Public Use
  Company Number: US-ROCHE-2078369

PATIENT
  Sex: Male
  Weight: 64.25 kg

DRUGS (19)
  1. VERAMYST [Concomitant]
     Active Substance: FLUTICASONE FUROATE
     Dosage: 1 SPRAY EACH NOSTRIL QD, 27.5MCG/SPRAY
     Route: 045
  2. ZYRTEC (UNITED STATES) [Concomitant]
     Dosage: 10ML  QD
     Route: 048
  3. EPIPEN [Concomitant]
     Active Substance: EPINEPHRINE
     Dosage: 0.3MG/0.3ML
  4. SPIRIVA RESPIMAT [Concomitant]
     Active Substance: TIOTROPIUM BROMIDE
     Dosage: TAKE 2 INHALATIONS QD, 1.25MCG/ACT
     Route: 055
  5. XOPENEX HFA [Concomitant]
     Active Substance: LEVALBUTEROL TARTRATE
     Indication: ASTHMA
     Dosage: 2 PUFFS EVERY 2 HRS WHILE AWAKE FOR 24?48 HOURS
     Route: 055
  6. AZITHROMYCIN ANHYDROUS. [Concomitant]
     Active Substance: AZITHROMYCIN ANHYDROUS
     Dosage: 2 TEASPOONS ONE TIMES A DAY FOR 6 DAYS, 200MG/5ML
     Route: 048
  7. NASONEX [Concomitant]
     Active Substance: MOMETASONE FUROATE
     Dosage: 2 SPRAY /NOSTRIL QD
     Route: 045
  8. LEVALBUTEROL. [Concomitant]
     Active Substance: LEVALBUTEROL
     Indication: COUGH
     Dosage: ONE VIAL Q 4?6 HRS AS NEEDED., 1.25MG/0.5ML
     Route: 045
  9. XOPENEX HFA [Concomitant]
     Active Substance: LEVALBUTEROL TARTRATE
     Indication: CHEST DISCOMFORT
     Dosage: 45MCG/ACT
  10. DULERA [Concomitant]
     Active Substance: FORMOTEROL FUMARATE DIHYDRATE\MOMETASONE FUROATE
     Dosage: 2 PUFFS INHALED , TWO TIMES A DAY.
     Route: 055
  11. XOPENEX HFA [Concomitant]
     Active Substance: LEVALBUTEROL TARTRATE
     Indication: WHEEZING
  12. XOPENEX HFA [Concomitant]
     Active Substance: LEVALBUTEROL TARTRATE
     Indication: COUGH
  13. STERILE WATER [Concomitant]
     Active Substance: WATER
  14. TAMIFLU [Suspect]
     Active Substance: OSELTAMIVIR PHOSPHATE
     Indication: PRODUCT USED FOR UNKNOWN INDICATION
     Dosage: 1 DAILY FOR 10 DAYS
     Route: 048
  15. AUGMENTIN ES?600 [Concomitant]
     Active Substance: AMOXICILLIN\CLAVULANATE POTASSIUM
     Dosage: 2 TIMES PER DAY WITH FOOD FOR NEXT 10 DAYS
     Route: 048
  16. ZYRTEC?D [Concomitant]
     Active Substance: CETIRIZINE HYDROCHLORIDE\PSEUDOEPHEDRINE HYDROCHLORIDE
     Dosage: 5?120MG?ALLERGY AND CONGESTION
     Route: 048
  17. PROAIR HFA [Concomitant]
     Active Substance: ALBUTEROL SULFATE
     Indication: COUGH
     Dosage: 2 PUFFS Q 4?6 HOURS AS NEEDED
     Route: 055
  18. OXYGEN. [Concomitant]
     Active Substance: OXYGEN
  19. XOLAIR [Concomitant]
     Active Substance: OMALIZUMAB
     Indication: ASTHMA
     Route: 058

REACTIONS (2)
  - Bronchiolitis [Unknown]
  - Feeding disorder [Unknown]
